FAERS Safety Report 14552849 (Version 1)
Quarter: 2018Q1

REPORT INFORMATION
  Report Type: Spontaneous
  Country: NL (occurrence: NL)
  Receive Date: 20180220
  Receipt Date: 20180220
  Transmission Date: 20180509
  Serious: Yes (Hospitalization)
  Sender: FDA-Public Use
  Company Number: NL-ASTELLAS-2018US008814

PATIENT
  Age: 22 Year
  Sex: Female

DRUGS (7)
  1. ANAKINRA [Concomitant]
     Active Substance: ANAKINRA
     Route: 065
  2. ANAKINRA [Concomitant]
     Active Substance: ANAKINRA
     Dosage: 100 MG, OTHER (EACH DAY)
     Route: 065
  3. PREDNISONE. [Suspect]
     Active Substance: PREDNISONE
     Indication: RENAL TRANSPLANT
     Dosage: UNK UNK, UNKNOWN FREQ.
     Route: 065
  4. ANAKINRA [Concomitant]
     Active Substance: ANAKINRA
     Indication: CRYOPYRIN ASSOCIATED PERIODIC SYNDROME
     Route: 065
  5. TACROLIMUS. [Suspect]
     Active Substance: TACROLIMUS
     Indication: RENAL TRANSPLANT
     Dosage: UNK UNK, UNKNOWN FREQ.
     Route: 065
  6. MYCOPHENOLATE MOFETIL. [Suspect]
     Active Substance: MYCOPHENOLATE MOFETIL
     Indication: RENAL TRANSPLANT
     Dosage: UNK UNK, UNKNOWN FREQ.
     Route: 065
  7. ANAKINRA [Concomitant]
     Active Substance: ANAKINRA
     Dosage: 100 MG, OTHER (EVERY 36 HR)
     Route: 065

REACTIONS (4)
  - Influenza [Unknown]
  - Epstein-Barr virus infection [Unknown]
  - Norovirus test positive [Unknown]
  - Diarrhoea [Unknown]
